FAERS Safety Report 24768906 (Version 1)
Quarter: 2024Q4

REPORT INFORMATION
  Report Type: Spontaneous
  Country: JP (occurrence: JP)
  Receive Date: 20241224
  Receipt Date: 20241224
  Transmission Date: 20250115
  Serious: Yes (Other)
  Sender: GLAND PHARMA LTD
  Company Number: JP-GLANDPHARMA-JP-2024GLNLIT01298

PATIENT
  Age: 67 Year
  Sex: Female

DRUGS (4)
  1. CISPLATIN [Suspect]
     Active Substance: CISPLATIN
     Indication: Oesophageal squamous cell carcinoma
     Route: 065
  2. CISPLATIN [Suspect]
     Active Substance: CISPLATIN
     Indication: Oesophageal squamous cell carcinoma
     Dosage: MAINTENANCE CHEMOTHERAPY WITH 2 COURSES
     Route: 065
  3. FLUOROURACIL [Suspect]
     Active Substance: FLUOROURACIL
     Indication: Oesophageal squamous cell carcinoma
     Route: 065
  4. FLUOROURACIL [Suspect]
     Active Substance: FLUOROURACIL
     Indication: Oesophageal squamous cell carcinoma
     Dosage: MAINTENANCE CHEMOTHERAPY WITH 2 COURSES
     Route: 065

REACTIONS (3)
  - Pharyngitis [Unknown]
  - Oesophagitis [Unknown]
  - Product use in unapproved indication [Unknown]
